FAERS Safety Report 12603355 (Version 2)
Quarter: 2016Q3

REPORT INFORMATION
  Report Type: Report from Study
  Country: TW (occurrence: TW)
  Receive Date: 20160728
  Receipt Date: 20160817
  Transmission Date: 20161109
  Serious: Yes (Hospitalization)
  Sender: FDA-Public Use
  Company Number: TW-ABBVIE-16K-153-1682934-00

PATIENT
  Age: 36 Year
  Sex: Male
  Weight: 58 kg

DRUGS (5)
  1. ALPRAZOLAM. [Concomitant]
     Active Substance: ALPRAZOLAM
     Indication: ANXIETY
     Dosage: HS
     Route: 048
     Dates: start: 19980911
  2. HUMIRA [Suspect]
     Active Substance: ADALIMUMAB
     Indication: ANKYLOSING SPONDYLITIS
     Route: 058
     Dates: start: 20090121, end: 20160707
  3. DICLOFENAC POTASSIUM. [Concomitant]
     Active Substance: DICLOFENAC POTASSIUM
     Indication: ANKYLOSING SPONDYLITIS
     Dates: start: 19980911
  4. SULFASALAZINE. [Concomitant]
     Active Substance: SULFASALAZINE
     Indication: ANKYLOSING SPONDYLITIS
     Route: 048
     Dates: start: 201210
  5. HOMATROPINE METHYLBR PEPTIDIN [Concomitant]
     Indication: PRODUCT USED FOR UNKNOWN INDICATION

REACTIONS (15)
  - Hydrothorax [Not Recovered/Not Resolved]
  - Haemothorax [Not Recovered/Not Resolved]
  - Weight decreased [Not Recovered/Not Resolved]
  - Computerised tomogram thorax abnormal [Not Recovered/Not Resolved]
  - Cough [Not Recovered/Not Resolved]
  - Tuberculosis [Not Recovered/Not Resolved]
  - Sputum purulent [Not Recovered/Not Resolved]
  - Lung infection [Not Recovered/Not Resolved]
  - Pneumothorax [Not Recovered/Not Resolved]
  - Joint range of motion decreased [Unknown]
  - Chest pain [Not Recovered/Not Resolved]
  - Bullous lung disease [Unknown]
  - Hydrothorax [Not Recovered/Not Resolved]
  - Drug effect incomplete [Not Recovered/Not Resolved]
  - Pulmonary fibrosis [Unknown]

NARRATIVE: CASE EVENT DATE: 201607
